APPROVED DRUG PRODUCT: VIOXX
Active Ingredient: ROFECOXIB
Strength: 12.5MG
Dosage Form/Route: TABLET;ORAL
Application: N021042 | Product #001
Applicant: MERCK RESEARCH LABORATORIES DIV MERCK CO INC
Approved: May 20, 1999 | RLD: No | RS: No | Type: DISCN